FAERS Safety Report 4950389-X (Version None)
Quarter: 2006Q1

REPORT INFORMATION
  Report Type: 
  Country: None (occurrence: None)
  Receive Date: 20060322
  Receipt Date: 20060316
  Transmission Date: 20060701
  Serious: Yes (Life-Threatening)
  Sender: FDA-Public Use
  Company Number: PHEH2006US03572

PATIENT
  Age: 74 Year
  Sex: Female

DRUGS (1)
  1. EXJADE [Suspect]
     Dosage: 500 MG, Q12H
     Route: 048
     Dates: start: 20060226

REACTIONS (2)
  - HEPATIC ENCEPHALOPATHY [None]
  - SEPSIS [None]
